FAERS Safety Report 7902606-1 (Version None)
Quarter: 2011Q4

REPORT INFORMATION
  Report Type: 
  Country: None (occurrence: None)
  Receive Date: 20111108
  Receipt Date: 20111026
  Transmission Date: 20120403
  Serious: Yes (Death)
  Sender: FDA-Public Use
  Company Number: AU-ROCHE-1007241

PATIENT
  Age: 78 Year
  Sex: Female

DRUGS (3)
  1. CYCLOSPORINE [Suspect]
     Indication: PRODUCT USED FOR UNKNOWN INDICATION
     Route: 048
  2. MYCOPHENOLATE MOFETIL (CELLCEPT) [Suspect]
     Indication: PRODUCT USED FOR UNKNOWN INDICATION
     Route: 048
  3. PREDNISOLONE [Suspect]
     Indication: PRODUCT USED FOR UNKNOWN INDICATION

REACTIONS (21)
  - NAUSEA [None]
  - SOMNOLENCE [None]
  - SYSTEMIC MYCOSIS [None]
  - OEDEMA PERIPHERAL [None]
  - URINE OUTPUT DECREASED [None]
  - VOMITING [None]
  - PAIN IN EXTREMITY [None]
  - LUNG INFILTRATION [None]
  - PLEURAL EFFUSION [None]
  - ABDOMINAL PAIN [None]
  - COUGH [None]
  - BODY TEMPERATURE INCREASED [None]
  - CELLULITIS [None]
  - FLUID OVERLOAD [None]
  - BLOOD URIC ACID INCREASED [None]
  - SKIN LESION [None]
  - JOINT SWELLING [None]
  - CONFUSIONAL STATE [None]
  - RALES [None]
  - SPUTUM INCREASED [None]
  - DYSPNOEA [None]
